FAERS Safety Report 19691102 (Version 1)
Quarter: 2021Q3

REPORT INFORMATION
  Report Type: Spontaneous
  Country: US (occurrence: US)
  Receive Date: 20210812
  Receipt Date: 20210812
  Transmission Date: 20211014
  Serious: Yes (Hospitalization)
  Sender: FDA-Public Use
  Company Number: None

PATIENT
  Age: 65 Year
  Sex: Female

DRUGS (2)
  1. COTELLIC [Suspect]
     Active Substance: COBIMETINIB
     Indication: MALIGNANT MELANOMA
     Route: 048
     Dates: start: 20210501, end: 20210812
  2. ZELBORAF [Suspect]
     Active Substance: VEMURAFENIB
     Indication: MALIGNANT MELANOMA
     Route: 048
     Dates: start: 20210501, end: 20210812

REACTIONS (7)
  - Hallucination [None]
  - Nausea [None]
  - Asthenia [None]
  - Diarrhoea [None]
  - Fatigue [None]
  - Decreased appetite [None]
  - Drug interaction [None]

NARRATIVE: CASE EVENT DATE: 20210501
